FAERS Safety Report 16473679 (Version 4)
Quarter: 2019Q3

REPORT INFORMATION
  Report Type: Spontaneous
  Country: US (occurrence: US)
  Receive Date: 20190625
  Receipt Date: 20190917
  Transmission Date: 20191004
  Serious: Yes (Other)
  Sender: FDA-Public Use
  Company Number: US-TORRENT-00008908

PATIENT
  Age: 71 Year
  Sex: Female
  Weight: 65 kg

DRUGS (3)
  1. KEPPRA [Concomitant]
     Active Substance: LEVETIRACETAM
     Indication: BRAIN OEDEMA
     Dosage: UNKNOWN
  2. LEVETIRACETAM. [Suspect]
     Active Substance: LEVETIRACETAM
     Indication: BRAIN OEDEMA
     Dosage: 125 MG BID, CUT THE TABLET IN HALF
  3. LEVETIRACETAM. [Concomitant]
     Active Substance: LEVETIRACETAM
     Indication: BRAIN OEDEMA
     Dosage: 250 BID
     Dates: start: 20181017

REACTIONS (7)
  - Partial seizures [Recovered/Resolved]
  - Fall [Recovered/Resolved]
  - Balance disorder [Unknown]
  - Product substitution issue [Unknown]
  - Tremor [Unknown]
  - Product colour issue [Unknown]
  - Asthenia [Recovered/Resolved]
